FAERS Safety Report 6204798-1 (Version None)
Quarter: 2009Q2

REPORT INFORMATION
  Report Type: 
  Country: None (occurrence: None)
  Receive Date: 20090527
  Receipt Date: 20090518
  Transmission Date: 20091009
  Serious: Yes (Hospitalization)
  Sender: FDA-Public Use
  Company Number: PHHY2009FR19314

PATIENT
  Age: 25 Year
  Sex: Female

DRUGS (1)
  1. RIAMET [Suspect]
     Indication: MALARIA
     Dosage: UNK
     Dates: start: 20090227, end: 20090301

REACTIONS (1)
  - NEUTROPENIA [None]
